FAERS Safety Report 8302189-0 (Version None)
Quarter: 2012Q2

REPORT INFORMATION
  Report Type: 
  Country: None (occurrence: None)
  Receive Date: 20120420
  Receipt Date: 20120417
  Transmission Date: 20120825
  Serious: Yes (Hospitalization)
  Sender: FDA-Public Use
  Company Number: NL-US-EMD SERONO, INC.-7103083

PATIENT
  Sex: Female
  Weight: 90 kg

DRUGS (6)
  1. REBIF [Suspect]
     Indication: MULTIPLE SCLEROSIS
     Route: 058
     Dates: start: 20111010, end: 20120405
  2. MAGNESIUM [Concomitant]
     Indication: PRODUCT USED FOR UNKNOWN INDICATION
  3. DUSPATAL RETARD [Concomitant]
     Indication: GASTROINTESTINAL PAIN
     Route: 048
     Dates: start: 20080101
  4. NEXIUM [Concomitant]
     Indication: GASTROINTESTINAL DISORDER
     Route: 048
     Dates: start: 20080101
  5. MOVICOLON [Concomitant]
     Indication: PRODUCT USED FOR UNKNOWN INDICATION
  6. DUSPATAL RETARD [Concomitant]
     Indication: IRRITABLE BOWEL SYNDROME

REACTIONS (8)
  - HEADACHE [None]
  - HOSPITALISATION [None]
  - GASTROINTESTINAL PAIN [None]
  - NEURALGIA [None]
  - NASOPHARYNGITIS [None]
  - CONSTIPATION [None]
  - INJECTION SITE REACTION [None]
  - CHILLS [None]
